FAERS Safety Report 21330696 (Version 1)
Quarter: 2022Q3

REPORT INFORMATION
  Report Type: Report from Study
  Country: KP (occurrence: KR)
  Receive Date: 20220913
  Receipt Date: 20220913
  Transmission Date: 20221027
  Serious: Yes (Hospitalization)
  Sender: FDA-Public Use
  Company Number: KR-BIAL-BIAL-10891

PATIENT

DRUGS (2)
  1. OPICAPONE [Suspect]
     Active Substance: OPICAPONE
     Indication: Parkinsonism
     Dosage: 50 MILLIGRAM, QD
     Route: 048
     Dates: start: 20220817, end: 20220825
  2. PERKIN 25-100 [Concomitant]
     Indication: Parkinsonism
     Dosage: 150 MILLIGRAM, DAILY
     Route: 048
     Dates: start: 20220817, end: 20220825

REACTIONS (2)
  - Nausea [Recovered/Resolved]
  - Vomiting [Recovered/Resolved]

NARRATIVE: CASE EVENT DATE: 20220818
